FAERS Safety Report 8480061-3 (Version None)
Quarter: 2012Q2

REPORT INFORMATION
  Report Type: 
  Country: None (occurrence: None)
  Receive Date: 20120629
  Receipt Date: 20120628
  Transmission Date: 20120825
  Serious: No
  Sender: FDA-Public Use
  Company Number: US-PFIZER INC-2012156242

PATIENT
  Sex: Female
  Weight: 113.38 kg

DRUGS (3)
  1. BENICAR HCT [Concomitant]
     Indication: HYPERTENSION
     Dosage: 40/25 MG, DAILY
  2. EFFEXOR [Suspect]
     Indication: PANIC ATTACK
  3. EFFEXOR [Suspect]
     Indication: DEPRESSION
     Dosage: UNK
     Dates: start: 20120601, end: 20120601

REACTIONS (6)
  - NAUSEA [None]
  - DRY MOUTH [None]
  - INSOMNIA [None]
  - SNEEZING [None]
  - HEADACHE [None]
  - THROAT IRRITATION [None]
